FAERS Safety Report 5337997-1 (Version None)
Quarter: 2007Q2

REPORT INFORMATION
  Report Type: 
  Country: None (occurrence: None)
  Receive Date: 20070530
  Receipt Date: 20070521
  Transmission Date: 20071010
  Serious: Yes (Other)
  Sender: FDA-Public Use
  Company Number: PHBS2007BR08522

PATIENT
  Age: 73 Year
  Sex: Female
  Weight: 62 kg

DRUGS (1)
  1. FORASEQ [Suspect]
     Indication: ASTHMA
     Dosage: 2 DF, BID

REACTIONS (5)
  - ANXIETY [None]
  - ASTHENIA [None]
  - DEPRESSION [None]
  - HYPOTENSION [None]
  - TREMOR [None]
